FAERS Safety Report 10047970 (Version 2)
Quarter: 2014Q2

REPORT INFORMATION
  Report Type: Spontaneous
  Country: US (occurrence: None)
  Receive Date: 20140327
  Receipt Date: 20140411
  Transmission Date: 20141212
  Serious: Yes (Hospitalization)
  Sender: FDA-Public Use
  Company Number: AXC-2014-000199

PATIENT
  Age: 74 Year
  Sex: Female

DRUGS (18)
  1. ZENPEP [Suspect]
     Indication: PANCREATECTOMY
     Dosage: 130,000 USP, QD (3 CAPS WITH MEALS, 2 WITH SNAKCS), ORAL
     Route: 048
     Dates: end: 20140214
  2. TEMAZEPAM [Suspect]
     Indication: PAIN
     Dosage: 30 MG, QHS, ORAL
     Route: 048
  3. LANTUS (INSULIN GLARGINE) [Concomitant]
  4. NOVOLOG (INSULIN ASPART) [Concomitant]
  5. LIBRAX /00033301/ (CHLORDIAZEPOXIDE HYDROCHLORIDE, CLIDINIUM BROMIDE) [Concomitant]
  6. ENALAPRIL (ENALAPRIL) [Concomitant]
  7. SYNTHROID (LEVOTHYROXINE SODIUM) [Concomitant]
  8. PRILOSEC /00661201/ (OMEPRAZOLE) [Concomitant]
  9. FLUOXETINE (FLUOXETINE) [Concomitant]
  10. AMLODIPINE (AMLODIPINE) [Concomitant]
  11. TRAMADOL (TRAMADOL) [Concomitant]
  12. GABAPENTIN (GABAPENTIN) [Concomitant]
  13. HYDROCODONE (HYDROCODONE) [Concomitant]
  14. CHOLESTYRAMINE (COLESTYRAMINE) [Concomitant]
  15. HYDROCHLOROTHIAZIDE (HYDROCHLOFROTHIAZIDE) [Concomitant]
  16. POTASSIUM GLUCONATE (POTASSIUM GLUCONATE) UNKNOWN [Concomitant]
  17. VITAMIN D3 (COLECALCIFEROL) [Concomitant]
  18. VITAMIN B COMPLEX (VITAMIN B COMPLEX) [Concomitant]

REACTIONS (13)
  - Nonspecific reaction [None]
  - Incoherent [None]
  - Anal neoplasm [None]
  - Weight decreased [None]
  - Thinking abnormal [None]
  - Nightmare [None]
  - Intentional product misuse [None]
  - Post procedural complication [None]
  - Dysuria [None]
  - Spinal pain [None]
  - Blood glucose decreased [None]
  - Discomfort [None]
  - Asthenia [None]
